FAERS Safety Report 4801699-8 (Version None)
Quarter: 2005Q4

REPORT INFORMATION
  Report Type: 
  Country: None (occurrence: None)
  Receive Date: 20051018
  Receipt Date: 20051006
  Transmission Date: 20060501
  Serious: Yes (Hospitalization)
  Sender: FDA-Public Use
  Company Number: FR-GLAXOSMITHKLINE-B0396645A

PATIENT
  Age: 85 Year
  Sex: Female
  Weight: 62 kg

DRUGS (10)
  1. DEROXAT [Suspect]
     Indication: DEPRESSION
     Dosage: 10MG PER DAY
     Route: 048
     Dates: start: 20050525, end: 20050819
  2. ZOLOFT [Suspect]
     Indication: DEPRESSION
     Dosage: 50MG PER DAY
     Route: 048
     Dates: start: 20050819, end: 20050821
  3. OROCAL [Concomitant]
     Dosage: 2UNIT PER DAY
     Route: 048
     Dates: start: 20050515
  4. KARDEGIC [Concomitant]
     Dosage: 160MG PER DAY
     Route: 048
     Dates: start: 20050515
  5. HYPERIUM [Concomitant]
     Dosage: 1MG PER DAY
     Route: 048
  6. COAPROVEL [Concomitant]
     Dosage: 1UNIT PER DAY
     Route: 048
     Dates: start: 20050515
  7. TRANXENE [Concomitant]
     Dosage: 5MG AS REQUIRED
  8. ESBERIVEN FORT [Concomitant]
     Dosage: 2UNIT PER DAY
  9. METEOSPASMYL [Concomitant]
     Dosage: 2UNIT PER DAY
  10. PROPOFOL [Concomitant]

REACTIONS (6)
  - ANXIETY [None]
  - BALANCE DISORDER [None]
  - DYSPNOEA [None]
  - DYSSTASIA [None]
  - HYPONATRAEMIA [None]
  - MALAISE [None]
